FAERS Safety Report 14334560 (Version 4)
Quarter: 2018Q1

REPORT INFORMATION
  Report Type: Spontaneous
  Country: FR (occurrence: FR)
  Receive Date: 20171228
  Receipt Date: 20180328
  Transmission Date: 20180509
  Serious: Yes (Hospitalization, Other)
  Sender: FDA-Public Use
  Company Number: FR-BAUSCH-BL-2017-034610

PATIENT
  Age: 57 Year
  Sex: Male
  Weight: 56 kg

DRUGS (52)
  1. PANOBINOSTAT [Suspect]
     Active Substance: PANOBINOSTAT
     Indication: PLASMA CELL MYELOMA
     Route: 065
  2. CARFILZOMIB [Suspect]
     Active Substance: CARFILZOMIB
     Indication: PLASMA CELL MYELOMA
     Route: 065
  3. VELCADE [Suspect]
     Active Substance: BORTEZOMIB
     Indication: PLASMA CELL MYELOMA
     Dosage: LYOPHILIZED POWDER
     Route: 065
  4. TRIATEC [Concomitant]
     Active Substance: RAMIPRIL
     Indication: PRODUCT USED FOR UNKNOWN INDICATION
     Dosage: 1.25 MG, IN THE MORNING AND AT NIGHT
  5. SODIUM BICARBONATE. [Concomitant]
     Active Substance: SODIUM BICARBONATE
  6. ENDOXAN [Suspect]
     Active Substance: CYCLOPHOSPHAMIDE
     Indication: PLASMA CELL MYELOMA
     Dosage: (5 TABLETS) AT 12 PM AND 7 PM ON FRIDAY THEN 10 TABLETS
     Route: 065
  7. LANTUS [Concomitant]
     Active Substance: INSULIN GLARGINE
     Indication: PRODUCT USED FOR UNKNOWN INDICATION
     Dosage: 40 IU, QD (AT NIGHT)
     Route: 058
  8. HYDROCORTISONE. [Concomitant]
     Active Substance: HYDROCORTISONE
     Route: 065
  9. TAVANIC [Concomitant]
     Active Substance: LEVOFLOXACIN
     Indication: ANTIBIOTIC PROPHYLAXIS
     Dosage: 250 MG, 1 DAY OUT OF 2, ODD DAYS
     Route: 065
  10. ASPIRIN. [Concomitant]
     Active Substance: ASPIRIN
     Dosage: 1 G X 2 DAY FOR 7 DAYS
  11. EPOETIN ALFA [Concomitant]
     Active Substance: ERYTHROPOIETIN
     Indication: PRODUCT USED FOR UNKNOWN INDICATION
     Dosage: 30,000 1/WEEK SATURDAY
     Route: 065
  12. FUROSEMIDE. [Concomitant]
     Active Substance: FUROSEMIDE
     Indication: PRODUCT USED FOR UNKNOWN INDICATION
     Dosage: 500 (1/4 -0-0)
     Route: 065
  13. LANSOPRAZOLE. [Concomitant]
     Active Substance: LANSOPRAZOLE
     Indication: PRODUCT USED FOR UNKNOWN INDICATION
     Dosage: DOSAGE FORM: UNSPECIFIED (AT NIGHT)
     Route: 065
  14. CARFILZOMIB [Suspect]
     Active Substance: CARFILZOMIB
     Dosage: 112 MG, ON DAYS 1, 2, 8, 9, 15 AND 16
     Route: 065
  15. IXAZOMIB [Suspect]
     Active Substance: IXAZOMIB
     Indication: PLASMA CELL MYELOMA
     Route: 065
  16. AMLODIPINE [Concomitant]
     Active Substance: AMLODIPINE BESYLATE
     Indication: PRODUCT USED FOR UNKNOWN INDICATION
     Route: 065
  17. VALACICLOVIR [Concomitant]
     Active Substance: VALACYCLOVIR HYDROCHLORIDE
     Indication: PRODUCT USED FOR UNKNOWN INDICATION
     Dosage: 500 MG, IN THE MORNING OF EVEN DAYS
     Route: 065
  18. TRIATEC [Concomitant]
     Active Substance: RAMIPRIL
  19. SODIUM BICARBONATE. [Concomitant]
     Active Substance: SODIUM BICARBONATE
     Route: 065
  20. HYDROCORTISONE. [Concomitant]
     Active Substance: HYDROCORTISONE
     Indication: PRODUCT USED FOR UNKNOWN INDICATION
     Dosage: 40 MG IN MORNING, 20 MG IN NOON
     Dates: start: 20170101
  21. HYDROCORTISONE. [Concomitant]
     Active Substance: HYDROCORTISONE
  22. HYDROCORTISONE. [Concomitant]
     Active Substance: HYDROCORTISONE
     Route: 042
     Dates: start: 20170701
  23. ASPIRIN. [Concomitant]
     Active Substance: ASPIRIN
     Indication: PERICARDITIS
     Dates: start: 20170101, end: 20170120
  24. APIDRA [Concomitant]
     Active Substance: INSULIN GLULISINE
     Dosage: 30 IU, TID (IN THE MORNING, AT NOON AND NIGHT), ADDITIONAL INFO: 30000, 1 WEEK SATURDAY
     Route: 058
  25. SODIUM HYDROGEN CARBONATE [Concomitant]
     Active Substance: SODIUM BICARBONATE
     Route: 065
  26. SODIUM BICARBONATE. [Concomitant]
     Active Substance: SODIUM BICARBONATE
     Indication: PRODUCT USED FOR UNKNOWN INDICATION
     Dosage: 1 G, X 4 PER DAY
  27. SODIUM BICARBONATE. [Concomitant]
     Active Substance: SODIUM BICARBONATE
     Dosage: 1 G, X 3/DAY
  28. TOPALGIC [Concomitant]
     Indication: PAIN
     Dosage: 50 MG, X 4 PER DAY IF IN PAIN
     Route: 065
  29. ZELITREX [Concomitant]
     Active Substance: VALACYCLOVIR HYDROCHLORIDE
     Indication: PRODUCT USED FOR UNKNOWN INDICATION
     Dosage: 500 MG, 1 DAY OUT OF 2 (EVEN DAYS)
     Route: 065
  30. APIDRA [Concomitant]
     Active Substance: INSULIN GLULISINE
     Route: 058
  31. DOLIPRANE [Concomitant]
     Active Substance: ACETAMINOPHEN
     Indication: PAIN
     Dosage: IF IN PAIN
     Route: 065
  32. DEXAMETHASONE. [Suspect]
     Active Substance: DEXAMETHASONE
     Indication: PLASMA CELL MYELOMA
     Route: 065
  33. ENDOXAN [Suspect]
     Active Substance: CYCLOPHOSPHAMIDE
     Route: 065
  34. CARFILZOMIB [Suspect]
     Active Substance: CARFILZOMIB
     Route: 065
  35. CEFTRIAXONE. [Concomitant]
     Active Substance: CEFTRIAXONE
     Indication: PRODUCT USED FOR UNKNOWN INDICATION
     Route: 042
     Dates: start: 20170822, end: 20170822
  36. HYDROCORTISONE. [Concomitant]
     Active Substance: HYDROCORTISONE
  37. SODIUM HYDROGEN CARBONATE [Concomitant]
     Active Substance: SODIUM BICARBONATE
     Indication: PRODUCT USED FOR UNKNOWN INDICATION
     Route: 065
  38. AMLOR [Concomitant]
     Active Substance: AMLODIPINE BESYLATE
     Indication: PRODUCT USED FOR UNKNOWN INDICATION
     Dosage: 5 MG IN THE MORNING
     Route: 065
  39. AMLOR [Concomitant]
     Active Substance: AMLODIPINE BESYLATE
     Dosage: 10 MG, IN THE MORNING
     Route: 065
  40. SODIUM BICARBONATE. [Concomitant]
     Active Substance: SODIUM BICARBONATE
     Indication: PRODUCT USED FOR UNKNOWN INDICATION
     Dosage: DOSAGE FORM: UNSPECIFIED
     Route: 065
  41. IXAZOMIB [Suspect]
     Active Substance: IXAZOMIB
     Dosage: ADDITIONAL INFO: 30000, 1 WEEK SATURDAY
     Route: 065
  42. AMOXICILLIN. [Concomitant]
     Active Substance: AMOXICILLIN
     Indication: PRODUCT USED FOR UNKNOWN INDICATION
  43. SODIUM HYDROGEN CARBONATE [Concomitant]
     Active Substance: SODIUM BICARBONATE
     Dosage: DOSAGE FORM: UNSPECIFIED
     Route: 065
  44. LOVENOX [Concomitant]
     Active Substance: ENOXAPARIN SODIUM
     Indication: PRODUCT USED FOR UNKNOWN INDICATION
     Dosage: 0.2 X 1/DAY
  45. SODIUM BICARBONATE. [Concomitant]
     Active Substance: SODIUM BICARBONATE
  46. CARFILZOMIB [Suspect]
     Active Substance: CARFILZOMIB
     Route: 065
  47. HYDROCORTISONE. [Concomitant]
     Active Substance: HYDROCORTISONE
     Dosage: 30000, 1 WEEK SATURDAY
     Dates: start: 20170701
  48. TAVANIC [Concomitant]
     Active Substance: LEVOFLOXACIN
     Dosage: IN THE MORNING AND AT NIGHT
     Route: 065
     Dates: start: 20170823
  49. CALCIDIA [Concomitant]
     Active Substance: CALCIUM POLYCARBOPHIL
     Indication: PRODUCT USED FOR UNKNOWN INDICATION
     Dosage: QD (1-0-0)
     Route: 065
  50. ASPIRIN. [Concomitant]
     Active Substance: ASPIRIN
     Dates: start: 2017, end: 2017
  51. APIDRA [Concomitant]
     Active Substance: INSULIN GLULISINE
     Indication: PRODUCT USED FOR UNKNOWN INDICATION
     Route: 058
  52. APROVEL [Concomitant]
     Active Substance: IRBESARTAN
     Indication: PRODUCT USED FOR UNKNOWN INDICATION
     Dosage: 75 MG, 1 TABLET IN THE MORNING

REACTIONS (14)
  - Arthralgia [Unknown]
  - Pleural effusion [Recovering/Resolving]
  - Escherichia infection [Unknown]
  - Klebsiella infection [Recovering/Resolving]
  - Septic shock [Unknown]
  - Spinal pain [Unknown]
  - Pericarditis [Recovered/Resolved]
  - Respiratory failure [Unknown]
  - Morganella infection [Recovering/Resolving]
  - Pain in extremity [Unknown]
  - Diarrhoea [Recovering/Resolving]
  - Acute kidney injury [Unknown]
  - Therapeutic response decreased [Unknown]
  - Oedema peripheral [Not Recovered/Not Resolved]

NARRATIVE: CASE EVENT DATE: 20160101
